FAERS Safety Report 8406579-7 (Version None)
Quarter: 2012Q2

REPORT INFORMATION
  Report Type: 
  Country: None (occurrence: None)
  Receive Date: 20120604
  Receipt Date: 20120522
  Transmission Date: 20120825
  Serious: Yes (Other)
  Sender: FDA-Public Use
  Company Number: HR-JNJFOC-20120600029

PATIENT
  Age: 82 Year
  Sex: Female
  Weight: 65 kg

DRUGS (16)
  1. RANITAL [Concomitant]
     Indication: PRODUCT USED FOR UNKNOWN INDICATION
     Route: 065
  2. LIDOCAINE [Concomitant]
     Indication: PRODUCT USED FOR UNKNOWN INDICATION
     Route: 065
     Dates: end: 20110902
  3. AMITRIPTYLINE HCL [Suspect]
     Indication: PRODUCT USED FOR UNKNOWN INDICATION
     Route: 065
     Dates: end: 20110902
  4. LYRICA [Concomitant]
     Indication: PRODUCT USED FOR UNKNOWN INDICATION
     Route: 065
  5. OXAZEPAM [Suspect]
     Indication: PERSONALITY CHANGE DUE TO A GENERAL MEDICAL CONDITION
     Route: 065
     Dates: start: 20110114, end: 20110902
  6. ACYCLOVIR [Suspect]
     Indication: HERPES ZOSTER
     Dosage: 10X400 MG/DAY
     Route: 048
     Dates: start: 20110828, end: 20110902
  7. TRAMADOL HYDROCHLORIDE [Concomitant]
     Indication: PRODUCT USED FOR UNKNOWN INDICATION
     Route: 065
  8. BISOPROLOL FUMARATE [Concomitant]
     Indication: PRODUCT USED FOR UNKNOWN INDICATION
     Route: 065
     Dates: start: 20110114
  9. TRAMADOL HCL [Suspect]
     Indication: PRODUCT USED FOR UNKNOWN INDICATION
     Route: 065
     Dates: start: 20110801, end: 20110902
  10. CERSON [Concomitant]
     Indication: PRODUCT USED FOR UNKNOWN INDICATION
     Route: 065
  11. VENTOLIN [Concomitant]
     Indication: PRODUCT USED FOR UNKNOWN INDICATION
     Route: 065
  12. TRANDOLAPRIL [Concomitant]
     Indication: PRODUCT USED FOR UNKNOWN INDICATION
     Route: 065
     Dates: start: 20110114
  13. IBRUPROFEN [Suspect]
     Indication: PRODUCT USED FOR UNKNOWN INDICATION
     Route: 065
  14. SERETIDE DISCUS [Concomitant]
     Indication: PRODUCT USED FOR UNKNOWN INDICATION
     Route: 065
     Dates: start: 20110114
  15. TEGRETOL [Interacting]
     Indication: CRANIAL NERVE DISORDER
     Route: 065
     Dates: start: 20110817, end: 20110902
  16. VOLTAREN [Suspect]
     Indication: PRODUCT USED FOR UNKNOWN INDICATION
     Route: 065

REACTIONS (10)
  - LOSS OF CONSCIOUSNESS [None]
  - AGGRESSION [None]
  - FALL [None]
  - COMMUNICATION DISORDER [None]
  - IMPULSE-CONTROL DISORDER [None]
  - DELIRIUM [None]
  - HEPATIC ENCEPHALOPATHY [None]
  - DRUG-INDUCED LIVER INJURY [None]
  - DRUG INTERACTION [None]
  - JAUNDICE [None]
